FAERS Safety Report 8427038-1 (Version None)
Quarter: 2012Q2

REPORT INFORMATION
  Report Type: 
  Country: None (occurrence: None)
  Receive Date: 20120611
  Receipt Date: 20120605
  Transmission Date: 20120825
  Serious: Yes (Other)
  Sender: FDA-Public Use
  Company Number: US-ROCHE-1074716

PATIENT
  Sex: Male
  Weight: 99.426 kg

DRUGS (2)
  1. PEGASYS [Suspect]
     Indication: PLATELET COUNT DECREASED
     Route: 058
     Dates: start: 20120420
  2. PEGASYS [Suspect]
     Indication: WHITE BLOOD CELL COUNT DECREASED
     Route: 058

REACTIONS (2)
  - PLATELET COUNT DECREASED [None]
  - WHITE BLOOD CELL COUNT DECREASED [None]
